FAERS Safety Report 12464871 (Version 7)
Quarter: 2016Q4

REPORT INFORMATION
  Report Type: Report from Study
  Country: US (occurrence: US)
  Receive Date: 20160614
  Receipt Date: 20161004
  Transmission Date: 20170207
  Serious: Yes (Hospitalization)
  Sender: FDA-Public Use
  Company Number: US-JNJFOC-20160608444

PATIENT
  Age: 17 Year
  Sex: Male
  Weight: 60.8 kg

DRUGS (6)
  1. AZATHIOPRINE. [Concomitant]
     Active Substance: AZATHIOPRINE
     Route: 065
  2. REMICADE [Suspect]
     Active Substance: INFLIXIMAB
     Indication: INFLAMMATORY BOWEL DISEASE
     Route: 042
     Dates: start: 20081004
  3. PREDNISONE. [Concomitant]
     Active Substance: PREDNISONE
     Route: 065
  4. VITAMIN K [Concomitant]
     Active Substance: PHYTONADIONE
     Route: 065
  5. 5-ASA [Concomitant]
     Active Substance: MESALAMINE
     Route: 048
  6. REMICADE [Suspect]
     Active Substance: INFLIXIMAB
     Indication: INFLAMMATORY BOWEL DISEASE
     Route: 042
     Dates: start: 20150902

REACTIONS (3)
  - Cholangitis sclerosing [Recovered/Resolved]
  - Autoimmune hepatitis [Recovered/Resolved with Sequelae]
  - Ascites [Recovered/Resolved]

NARRATIVE: CASE EVENT DATE: 20150625
